FAERS Safety Report 21682815 (Version 2)
Quarter: 2023Q1

REPORT INFORMATION
  Report Type: Spontaneous
  Country: US (occurrence: US)
  Receive Date: 20221205
  Receipt Date: 20230111
  Transmission Date: 20230418
  Serious: No
  Sender: FDA-Public Use
  Company Number: US-BEH-2022152620

PATIENT
  Age: 3 Year
  Sex: Female
  Weight: 13.605 kg

DRUGS (3)
  1. HIZENTRA [Suspect]
     Active Substance: HUMAN IMMUNOGLOBULIN G
     Indication: Hypogammaglobulinaemia
     Dosage: 2 GRAM, QW
     Route: 058
     Dates: start: 20220711, end: 20221117
  2. LIDOCAINE [Concomitant]
     Active Substance: LIDOCAINE
     Indication: Premedication
  3. LIDOCAINE [Concomitant]
     Active Substance: LIDOCAINE
     Indication: Premedication

REACTIONS (2)
  - Urticaria [Recovered/Resolved]
  - Erythema [Recovered/Resolved]

NARRATIVE: CASE EVENT DATE: 20221117
